FAERS Safety Report 5989023-9 (Version None)
Quarter: 2008Q4

REPORT INFORMATION
  Report Type: 
  Country: None (occurrence: None)
  Receive Date: 20081210
  Receipt Date: 20081204
  Transmission Date: 20090506
  Serious: Yes (Other)
  Sender: FDA-Public Use
  Company Number: B0547494A

PATIENT
  Age: 58 Year
  Sex: Male

DRUGS (7)
  1. AVANDIA [Suspect]
     Dosage: 8MG PER DAY
     Route: 065
     Dates: start: 20041124, end: 20060726
  2. ACTOS [Suspect]
     Route: 065
     Dates: start: 20020422, end: 20041124
  3. METFORMIN HCL [Concomitant]
  4. MIXTARD HUMAN 70/30 [Concomitant]
  5. CORODIL [Concomitant]
     Indication: HYPERTENSION
     Dosage: 10MG PER DAY
  6. ZARATOR [Concomitant]
     Indication: LOW DENSITY LIPOPROTEIN INCREASED
     Dosage: 10MG PER DAY
  7. GABAPENTIN [Concomitant]
     Dosage: 300MG PER DAY
     Dates: start: 20011022

REACTIONS (3)
  - MACULAR OEDEMA [None]
  - MACULOPATHY [None]
  - VISUAL ACUITY REDUCED [None]
